FAERS Safety Report 7004931-8 (Version None)
Quarter: 2010Q3

REPORT INFORMATION
  Report Type: 
  Country: None (occurrence: None)
  Receive Date: 20100921
  Receipt Date: 20100917
  Transmission Date: 20110219
  Serious: No
  Sender: FDA-Public Use
  Company Number: US-TEVA-248896USA

PATIENT
  Sex: Female
  Weight: 74.91 kg

DRUGS (7)
  1. COPAXONE [Suspect]
     Indication: MULTIPLE SCLEROSIS
     Route: 058
     Dates: start: 20080201, end: 20100701
  2. FLUOXETINE HYDROCHLORIDE [Concomitant]
  3. ESTRADIOL [Concomitant]
  4. ALPRAZOLAM [Concomitant]
  5. HYDROCHLOROTHIAZIDE [Concomitant]
  6. GABAPENTIN [Concomitant]
  7. AMANTADINE HYDROCHLORIDE [Concomitant]

REACTIONS (1)
  - STAPHYLOCOCCAL INFECTION [None]
